FAERS Safety Report 11631484 (Version 4)
Quarter: 2016Q4

REPORT INFORMATION
  Report Type: Spontaneous
  Country: US (occurrence: US)
  Receive Date: 20151015
  Receipt Date: 20161109
  Transmission Date: 20170206
  Serious: No
  Sender: FDA-Public Use
  Company Number: PHEH2015US020250

PATIENT
  Sex: Female

DRUGS (2)
  1. VIVELLE-DOT [Suspect]
     Active Substance: ESTRADIOL
     Indication: PRODUCT USED FOR UNKNOWN INDICATION
     Dosage: UNK
     Route: 062
     Dates: start: 2009
  2. VIVELLE-DOT [Suspect]
     Active Substance: ESTRADIOL
     Dosage: 0.1 MG, BID
     Route: 062

REACTIONS (3)
  - Hot flush [Unknown]
  - Crying [Unknown]
  - Drug ineffective [Unknown]
